FAERS Safety Report 18134607 (Version 1)
Quarter: 2020Q3

REPORT INFORMATION
  Report Type: Spontaneous
  Country: PL (occurrence: PL)
  Receive Date: 20200811
  Receipt Date: 20200811
  Transmission Date: 20201103
  Serious: Yes (Hospitalization, Other)
  Sender: FDA-Public Use
  Company Number: PL-GILEAD-2020-0488786

PATIENT
  Age: 47 Year
  Sex: Male

DRUGS (5)
  1. BISEPTOL [Concomitant]
     Active Substance: SULFAMETHOXAZOLE\TRIMETHOPRIM
  2. DARUNAVIR [Concomitant]
     Active Substance: DARUNAVIR
  3. TRIMETHOPRIM SULFAMETHOXAZOLE [Concomitant]
     Active Substance: SULFAMETHOXAZOLE\TRIMETHOPRIM
     Indication: PNEUMOCYSTIS JIROVECII PNEUMONIA
  4. RITONAVIR. [Concomitant]
     Active Substance: RITONAVIR
  5. TRUVADA [Suspect]
     Active Substance: EMTRICITABINE\TENOFOVIR DISOPROXIL FUMARATE
     Indication: HIV INFECTION
     Dosage: UNK
     Route: 065
     Dates: start: 20191017, end: 202003

REACTIONS (16)
  - Cough [Unknown]
  - Arthralgia [Unknown]
  - Hypercholesterolaemia [Unknown]
  - Visual acuity reduced [Unknown]
  - Oral fungal infection [Unknown]
  - Cachexia [Unknown]
  - Asthenia [Unknown]
  - Non-cardiac chest pain [Unknown]
  - Weight decreased [Unknown]
  - Osteoporosis [Unknown]
  - Cytomegalovirus infection [Unknown]
  - Pancytopenia [Unknown]
  - Dysphagia [Unknown]
  - Tachycardia [Unknown]
  - Abdominal pain upper [Unknown]
  - Hypotension [Unknown]

NARRATIVE: CASE EVENT DATE: 201911
